FAERS Safety Report 26046781 (Version 2)
Quarter: 2025Q4

REPORT INFORMATION
  Report Type: Spontaneous
  Country: US (occurrence: US)
  Receive Date: 20251114
  Receipt Date: 20251122
  Transmission Date: 20260119
  Serious: No
  Sender: SANOFI AVENTIS
  Company Number: US-SA-2025SA335675

PATIENT
  Age: 50 Year
  Sex: Female

DRUGS (1)
  1. DUPIXENT [Suspect]
     Active Substance: DUPILUMAB
     Indication: Asthma
     Dosage: 300 MG, QOW
     Route: 058
     Dates: start: 202401

REACTIONS (7)
  - Injection site pain [Unknown]
  - Injection site swelling [Unknown]
  - Asthma [Unknown]
  - Accidental exposure to product [Unknown]
  - Exposure via skin contact [Unknown]
  - Incorrect dose administered [Unknown]
  - Device issue [Unknown]

NARRATIVE: CASE EVENT DATE: 20250101
